FAERS Safety Report 16171321 (Version 1)
Quarter: 2019Q2

REPORT INFORMATION
  Report Type: Spontaneous
  Country: US (occurrence: US)
  Receive Date: 20190408
  Receipt Date: 20190408
  Transmission Date: 20190711
  Serious: No
  Sender: FDA-Public Use
  Company Number: US-TARO-2018TAR00730

PATIENT
  Sex: Male
  Weight: 88.44 kg

DRUGS (6)
  1. CHONDROITIN [Concomitant]
     Active Substance: CHONDROITIN
  2. OCUVITE [Concomitant]
     Active Substance: VITAMINS
  3. FISH OIL [Concomitant]
     Active Substance: FISH OIL
  4. TRIAMCINOLONE (E. FOUGERA + CO.) [Suspect]
     Active Substance: TRIAMCINOLONE
     Indication: DISCOMFORT
     Dosage: UNK, 2X/DAY
     Route: 061
     Dates: start: 20180911, end: 201809
  5. VITAMIN D NOS [Concomitant]
     Active Substance: VITAMIN D NOS
  6. FLUOROURACIL TOPICAL CREAM USP 5% [Suspect]
     Active Substance: FLUOROURACIL
     Indication: ACTINIC KERATOSIS
     Dosage: APPLY TO ENTIRE FOREHEAD, FROM HIS EYEBROWS ABOVE AND ONTO HIS SCALP, 2X/DAY 12 HOURS APART AT 10 AM
     Route: 061
     Dates: start: 20180817, end: 20180830

REACTIONS (7)
  - Pain [Not Recovered/Not Resolved]
  - Insomnia [Not Recovered/Not Resolved]
  - Application site scab [Recovered/Resolved]
  - Anger [Not Recovered/Not Resolved]
  - Transient acantholytic dermatosis [Unknown]
  - Skin lesion [Unknown]
  - Application site erythema [Recovered/Resolved]

NARRATIVE: CASE EVENT DATE: 2018
